FAERS Safety Report 9060299 (Version 1)
Quarter: 2013Q1

REPORT INFORMATION
  Report Type: Spontaneous
  Country: US (occurrence: None)
  Receive Date: 20130207
  Receipt Date: 20130207
  Transmission Date: 20140127
  Serious: Yes (Hospitalization)
  Sender: FDA-Public Use
  Company Number: None

PATIENT
  Age: 65 Year
  Sex: Female
  Weight: 56.25 kg

DRUGS (1)
  1. PROLIA DENOSUMAB INJECTION [Suspect]
     Indication: OSTEOPOROSIS
     Dosage: FIRST TIME EVERY SIX MONTHS
     Dates: start: 20121203

REACTIONS (9)
  - Ear discomfort [None]
  - Bone pain [None]
  - Headache [None]
  - Dyspepsia [None]
  - Dyspnoea [None]
  - Vertigo [None]
  - Tremor [None]
  - Pain in extremity [None]
  - Injection site pain [None]
